FAERS Safety Report 8873774 (Version 1)
Quarter: 2012Q4

REPORT INFORMATION
  Report Type: 
  Country: US (occurrence: US)
  Receive Date: 20121026
  Receipt Date: 20121026
  Transmission Date: 20130627
  Serious: No
  Sender: FDA-Public Use
  Company Number: US-AMGEN-USASP2012045337

PATIENT
  Sex: Female
  Weight: 95.24 kg

DRUGS (5)
  1. ENBREL [Suspect]
     Indication: PRODUCT USED FOR UNKNOWN INDICATION
     Dosage: 50 mg, qwk
     Route: 058
  2. VITAMIN B12                        /00056201/ [Concomitant]
     Dosage: 1000 unk
  3. IBUPROFEN [Concomitant]
     Dosage: 200 mg, UNK
  4. ALBUTEROL                          /00139501/ [Concomitant]
     Dosage: 0.083 %
  5. ADDERALL [Concomitant]
     Dosage: 15 mg, UNK

REACTIONS (2)
  - Pain in extremity [Unknown]
  - Nasopharyngitis [Unknown]
